FAERS Safety Report 15116707 (Version 2)
Quarter: 2018Q3

REPORT INFORMATION
  Report Type: Spontaneous
  Country: DK (occurrence: DK)
  Receive Date: 20180706
  Receipt Date: 20180727
  Transmission Date: 20181010
  Serious: Yes (Hospitalization)
  Sender: FDA-Public Use
  Company Number: DK-TEVA-2018-DK-922115

PATIENT
  Age: 77 Year
  Sex: Female

DRUGS (10)
  1. IBANDRONIC ACID. [Concomitant]
     Active Substance: IBANDRONIC ACID
     Indication: OSTEOPOROSIS
     Dosage: STYRKE: 150 MG
     Route: 048
     Dates: start: 20180226
  2. TRAMADOL. [Concomitant]
     Active Substance: TRAMADOL
     Indication: PAIN
     Dosage: 300 MILLIGRAM DAILY; STYRKE: 150 MG
     Route: 048
  3. IBUPROFEN. [Concomitant]
     Active Substance: IBUPROFEN
     Indication: RHEUMATIC DISORDER
     Dosage: 1200 MILLIGRAM DAILY; STYRKE: 400 MG
     Route: 048
     Dates: start: 20151007
  4. DEXAMETHASONE. [Concomitant]
     Active Substance: DEXAMETHASONE
     Indication: EYE DISORDER
     Dates: start: 20171130
  5. ESTRADIOL. [Concomitant]
     Active Substance: ESTRADIOL
     Indication: HORMONE REPLACEMENT THERAPY
     Route: 067
     Dates: start: 20161207
  6. ZOPICLONE [Concomitant]
     Active Substance: ZOPICLONE
     Indication: INSOMNIA
     Dates: start: 20161121
  7. ACETYLSALICYLSYRE ^TEVA^ [Concomitant]
     Indication: ANTICOAGULANT THERAPY
     Dosage: 75 MILLIGRAM DAILY; STYRKE: 75 MG
     Route: 048
     Dates: start: 20150115
  8. QUININE [Concomitant]
     Active Substance: QUININE
     Indication: MUSCLE SPASMS
     Route: 048
     Dates: start: 20171020
  9. LOSARTANKALIUM/HYDROCHLORTHIAZID ^TEVA^ [Suspect]
     Active Substance: HYDROCHLOROTHIAZIDE\LOSARTAN POTASSIUM
     Indication: HYPERTENSION
     Dosage: 1 DOSAGE FORMS DAILY; STYRKE: 50+12,5 MG
     Route: 048
     Dates: start: 20150115, end: 20180522
  10. PARACETAMOL [Concomitant]
     Active Substance: ACETAMINOPHEN
     Indication: PAIN
     Dosage: STYRKE: 500 MG. DOSIS: 1?2 TABLETTER 3?4 GANGE DAGLIG
     Route: 048
     Dates: start: 20140827

REACTIONS (3)
  - Hyponatraemia [Recovered/Resolved]
  - Fall [Recovered/Resolved]
  - Syncope [Recovered/Resolved]

NARRATIVE: CASE EVENT DATE: 201804
